FAERS Safety Report 18156833 (Version 1)
Quarter: 2020Q3

REPORT INFORMATION
  Report Type: Spontaneous
  Country: US (occurrence: US)
  Receive Date: 20200817
  Receipt Date: 20200817
  Transmission Date: 20201103
  Serious: Yes (Disabling)
  Sender: FDA-Public Use
  Company Number: None

PATIENT
  Age: 37 Year
  Sex: Female
  Weight: 68.85 kg

DRUGS (1)
  1. FLUPHENAZINE ORAL PILL [Suspect]
     Active Substance: FLUPHENAZINE HYDROCHLORIDE
     Indication: MENTAL DISORDER
     Dosage: ?
     Route: 048
     Dates: start: 20200520, end: 20200720

REACTIONS (8)
  - Urinary incontinence [None]
  - Agitation [None]
  - Hyperphagia [None]
  - Somnolence [None]
  - Dyskinesia [None]
  - Propulsive gait [None]
  - Weight decreased [None]
  - Constipation [None]

NARRATIVE: CASE EVENT DATE: 20200701
